FAERS Safety Report 6161404-2 (Version None)
Quarter: 2009Q2

REPORT INFORMATION
  Report Type: 
  Country: None (occurrence: None)
  Receive Date: 20090417
  Receipt Date: 20090417
  Transmission Date: 20091009
  Serious: Yes (Other)
  Sender: FDA-Public Use
  Company Number: None

PATIENT
  Sex: Male
  Weight: 20 kg

DRUGS (3)
  1. SINGULAIR [Suspect]
     Indication: ASTHMA
     Dosage: 5MG QHS PO
     Route: 048
     Dates: start: 20090109, end: 20090116
  2. ALBUTEROL [Concomitant]
  3. PREDNISOLONE [Concomitant]

REACTIONS (4)
  - ABNORMAL BEHAVIOUR [None]
  - BURNING SENSATION [None]
  - CRYING [None]
  - PRURITUS [None]
